FAERS Safety Report 11913321 (Version 1)
Quarter: 2016Q1

REPORT INFORMATION
  Report Type: Spontaneous
  Country: US (occurrence: None)
  Receive Date: 20160112
  Receipt Date: 20160112
  Transmission Date: 20160526
  Serious: No
  Sender: FDA-Public Use
  Company Number: None

PATIENT

DRUGS (1)
  1. PROZAC [Suspect]
     Active Substance: FLUOXETINE HYDROCHLORIDE

REACTIONS (6)
  - Constipation [None]
  - Abdominal pain upper [None]
  - Chest pain [None]
  - Nausea [None]
  - Somnolence [None]
  - Tinnitus [None]

NARRATIVE: CASE EVENT DATE: 20160104
